FAERS Safety Report 20612697 (Version 3)
Quarter: 2022Q1

REPORT INFORMATION
  Report Type: Report from Study
  Country: CN (occurrence: None)
  Receive Date: 20220318
  Receipt Date: 20220331
  Transmission Date: 20220423
  Serious: Yes (Life-Threatening, Hospitalization)
  Sender: FDA-Public Use
  Company Number: CN-ROCHE-2852046

PATIENT
  Age: 58 Year
  Sex: Male
  Weight: 45 kg

DRUGS (83)
  1. TIRAGOLUMAB [Suspect]
     Active Substance: TIRAGOLUMAB
     Indication: Oesophageal squamous cell carcinoma
     Dosage: DOSE LAST STUDY DRUG ADMIN PRIOR AE 600 MG, START DATE OF MOST RECENT DOSE OF STUDY DRUG PRIOR TO AE
     Route: 042
     Dates: start: 20210603
  2. ATEZOLIZUMAB [Suspect]
     Active Substance: ATEZOLIZUMAB
     Indication: Oesophageal squamous cell carcinoma
     Dosage: DOSE LAST STUDY DRUG ADMIN PRIOR AE 1200 MG?START DATE OF MOST RECENT DOSE OF STUDY DRUG PRIOR TO AE
     Route: 041
     Dates: start: 20210603
  3. PACLITAXEL [Suspect]
     Active Substance: PACLITAXEL
     Indication: Oesophageal squamous cell carcinoma
     Dosage: START DATE OF MOST RECENT DOSE OF STUDY DRUG PRIOR TO AE 03-JUN-2021,DOSE LAST STUDY DRUG ADMIN PRIO
     Route: 042
     Dates: start: 20210603
  4. CISPLATIN [Suspect]
     Active Substance: CISPLATIN
     Indication: Oesophageal squamous cell carcinoma
     Dosage: START DATE OF MOST RECENT DOSE OF STUDY DRUG PRIOR TO AE 03-JUN-2021, DOSE LAST STUDY DRUG ADMIN PRI
     Route: 042
     Dates: start: 20210603
  5. METOPROLOL TARTRATE [Concomitant]
     Active Substance: METOPROLOL TARTRATE
     Indication: Heart rate decreased
     Dates: start: 20210809
  6. ESOMEPRAZOLE SODIUM [Concomitant]
     Active Substance: ESOMEPRAZOLE SODIUM
     Indication: Gastrooesophageal reflux disease
     Dates: start: 20210522, end: 20210531
  7. ESOMEPRAZOLE SODIUM [Concomitant]
     Active Substance: ESOMEPRAZOLE SODIUM
     Dates: start: 20210616, end: 20210709
  8. ESOMEPRAZOLE SODIUM [Concomitant]
     Active Substance: ESOMEPRAZOLE SODIUM
     Dates: start: 20210717, end: 20210723
  9. ESOMEPRAZOLE SODIUM [Concomitant]
     Active Substance: ESOMEPRAZOLE SODIUM
     Dates: start: 20210702, end: 20210709
  10. ESOMEPRAZOLE SODIUM [Concomitant]
     Active Substance: ESOMEPRAZOLE SODIUM
     Dates: start: 20210616, end: 20210724
  11. STRUCTURAL FAT EMULSION INJECTION (C6-24) [Concomitant]
     Indication: Parenteral nutrition
     Dates: start: 20210524, end: 20210605
  12. POTASSIUM CHLORIDE [Concomitant]
     Active Substance: POTASSIUM CHLORIDE
     Indication: Parenteral nutrition
     Dates: start: 20210524, end: 20210605
  13. POTASSIUM CHLORIDE [Concomitant]
     Active Substance: POTASSIUM CHLORIDE
     Dates: start: 20210603, end: 20210605
  14. INSULIN NOS [Concomitant]
     Active Substance: INSULIN NOS
     Indication: Parenteral nutrition
     Dates: start: 20210524, end: 20210605
  15. INSULIN NOS [Concomitant]
     Active Substance: INSULIN NOS
     Dates: start: 20210616, end: 20210616
  16. INSULIN NOS [Concomitant]
     Active Substance: INSULIN NOS
     Dates: start: 20210702, end: 20210808
  17. MOSAPRIDE CITRATE [Concomitant]
     Active Substance: MOSAPRIDE CITRATE
     Route: 048
     Dates: start: 20210525, end: 20210528
  18. MOSAPRIDE CITRATE [Concomitant]
     Active Substance: MOSAPRIDE CITRATE
     Route: 048
     Dates: start: 20210605, end: 20210605
  19. MEGESTROL ACETATE [Concomitant]
     Active Substance: MEGESTROL ACETATE
     Indication: Decreased appetite
     Dates: start: 20210602, end: 20210605
  20. MEGESTROL ACETATE [Concomitant]
     Active Substance: MEGESTROL ACETATE
     Route: 048
     Dates: start: 20210605, end: 20210605
  21. ONDANSETRON HYDROCHLORIDE [Concomitant]
     Active Substance: ONDANSETRON HYDROCHLORIDE
     Dates: start: 20210603, end: 20210605
  22. CODEINE PHOSPHATE;IBUPROFEN [Concomitant]
     Dates: start: 20210524, end: 20210524
  23. GLYCERIN [Concomitant]
     Active Substance: GLYCERIN
     Dates: start: 20210527, end: 20210528
  24. GLYCERIN [Concomitant]
     Active Substance: GLYCERIN
     Dates: start: 20210603, end: 20210604
  25. GLYCERIN [Concomitant]
     Active Substance: GLYCERIN
     Dates: start: 20210617
  26. DIPHENHYDRAMINE HYDROCHLORIDE [Concomitant]
     Active Substance: DIPHENHYDRAMINE HYDROCHLORIDE
     Dates: start: 20210603, end: 20210603
  27. MOTIDINE [Concomitant]
     Dates: start: 20210603, end: 20210603
  28. DEXTROSE\SODIUM CHLORIDE [Concomitant]
     Active Substance: DEXTROSE\SODIUM CHLORIDE
     Dates: start: 20210603, end: 20210605
  29. DEXTROSE [Concomitant]
     Active Substance: DEXTROSE
     Indication: Parenteral nutrition
     Dates: start: 20210524, end: 20210605
  30. LACTULOSE [Concomitant]
     Active Substance: LACTULOSE
     Indication: Constipation
     Route: 048
     Dates: start: 20210605, end: 20210605
  31. FOSAPREPITANT DIMEGLUMINE [Concomitant]
     Active Substance: FOSAPREPITANT DIMEGLUMINE
     Dates: start: 20210603, end: 20210603
  32. TROPISETRON [Concomitant]
     Active Substance: TROPISETRON
     Dates: start: 20210603, end: 20210603
  33. DEXTROSE [Concomitant]
     Active Substance: DEXTROSE
     Dates: start: 20210616, end: 20210624
  34. DEXTROSE [Concomitant]
     Active Substance: DEXTROSE
     Dates: start: 20210702, end: 20210808
  35. DEXTROSE [Concomitant]
     Active Substance: DEXTROSE
     Dates: start: 20210630, end: 20210630
  36. POTASSIUM CHLORIDE [Concomitant]
     Active Substance: POTASSIUM CHLORIDE
     Dates: start: 20210616, end: 20210616
  37. POTASSIUM CHLORIDE [Concomitant]
     Active Substance: POTASSIUM CHLORIDE
     Dates: start: 20210702, end: 20210808
  38. SODIUM CHLORIDE [Concomitant]
     Active Substance: SODIUM CHLORIDE
     Dates: start: 20210616, end: 20210617
  39. SODIUM CHLORIDE [Concomitant]
     Active Substance: SODIUM CHLORIDE
     Dates: start: 20210702, end: 20210808
  40. GLUTATHIONE [Concomitant]
     Active Substance: GLUTATHIONE
     Dates: start: 20210616, end: 20210701
  41. GLUTATHIONE [Concomitant]
     Active Substance: GLUTATHIONE
     Route: 042
     Dates: start: 20210716, end: 20210810
  42. GLUTATHIONE [Concomitant]
     Active Substance: GLUTATHIONE
     Dates: start: 20210729, end: 20210810
  43. GLUTATHIONE [Concomitant]
     Active Substance: GLUTATHIONE
     Dates: start: 20210717, end: 20210728
  44. PIPERACILLIN SODIUM\TAZOBACTAM SODIUM [Concomitant]
     Active Substance: PIPERACILLIN SODIUM\TAZOBACTAM SODIUM
     Route: 042
     Dates: start: 20210616, end: 20210617
  45. PIPERACILLIN SODIUM\TAZOBACTAM SODIUM [Concomitant]
     Active Substance: PIPERACILLIN SODIUM\TAZOBACTAM SODIUM
     Route: 042
     Dates: start: 20210714, end: 20210803
  46. AMBROXOL HYDROCHLORIDE;SODIUM CHLORIDE [Concomitant]
     Indication: Productive cough
     Route: 042
     Dates: start: 20210616, end: 20210624
  47. AMBROXOL HYDROCHLORIDE;SODIUM CHLORIDE [Concomitant]
     Route: 042
     Dates: start: 20210624, end: 20210808
  48. ACETYLCYSTEINE [Concomitant]
     Active Substance: ACETYLCYSTEINE
     Indication: Productive cough
     Route: 055
     Dates: start: 20210616, end: 20210627
  49. IMIPENEM AND CILASTATIN [Concomitant]
     Active Substance: CILASTATIN SODIUM\IMIPENEM
     Route: 042
     Dates: start: 20210617, end: 20210701
  50. IMIPENEM AND CILASTATIN [Concomitant]
     Active Substance: CILASTATIN SODIUM\IMIPENEM
     Route: 042
     Dates: start: 20210803, end: 20210809
  51. DOXOFYLLINE;GLUCOSE [Concomitant]
     Indication: Productive cough
     Route: 042
     Dates: start: 20210618, end: 20210630
  52. INOSINE [Concomitant]
     Active Substance: INOSINE
     Dates: start: 20210624, end: 20210810
  53. CARBAZOCHROME SODIUM SULFONATE;SODIUM CHLORIDE [Concomitant]
     Indication: Haemostasis
     Route: 042
     Dates: start: 20210628, end: 20210706
  54. CEFOPERAZONE SODIUM\SULBACTAM SODIUM [Concomitant]
     Active Substance: CEFOPERAZONE SODIUM\SULBACTAM SODIUM
     Route: 042
     Dates: start: 20210701, end: 20210729
  55. FAMOTIDINE [Concomitant]
     Active Substance: FAMOTIDINE
     Dates: start: 20210709, end: 20210716
  56. FAMOTIDINE [Concomitant]
     Active Substance: FAMOTIDINE
     Dates: start: 20210630, end: 20210630
  57. METOCLOPRAMIDE DIHYDROCHLORIDE [Concomitant]
     Indication: Vomiting
     Dates: start: 20210717, end: 20210810
  58. METOCLOPRAMIDE DIHYDROCHLORIDE [Concomitant]
     Dates: start: 20210630, end: 20210630
  59. OMEPRAZOLE SODIUM [Concomitant]
     Active Substance: OMEPRAZOLE SODIUM
     Dates: start: 20210724, end: 20210810
  60. CEFMETAZOLE SODIUM [Concomitant]
     Active Substance: CEFMETAZOLE SODIUM
     Route: 042
     Dates: start: 20210728, end: 20210729
  61. DIGOXIN [Concomitant]
     Active Substance: DIGOXIN
     Indication: Cardiac failure
     Route: 048
     Dates: start: 20210805
  62. MONTMORILLONITE [Concomitant]
     Active Substance: MONTMORILLONITE
     Dates: start: 20210702
  63. BUCINNAZINE HYDROCHLORIDE [Concomitant]
     Dates: start: 20210710, end: 20210710
  64. CARBOCYSTEINE [Concomitant]
     Active Substance: CARBOCYSTEINE
     Route: 045
     Dates: start: 20210709, end: 20210719
  65. AMIODARONE HYDROCHLORIDE [Concomitant]
     Active Substance: AMIODARONE HYDROCHLORIDE
     Dates: start: 20210711, end: 20210711
  66. LENAMPICILLIN [Concomitant]
     Route: 030
     Dates: start: 20210711, end: 20210711
  67. CEFDINIR [Concomitant]
     Active Substance: CEFDINIR
     Route: 048
     Dates: start: 20210719
  68. AMBROXOL HYDROCHLORIDE [Concomitant]
     Active Substance: AMBROXOL HYDROCHLORIDE
     Route: 048
     Dates: start: 20210719
  69. COMPOUND GLYCYRRHIZIN (UNK INGREDIENTS) [Concomitant]
     Dosage: DOSE: 3 TABLET
     Route: 048
     Dates: start: 20210719
  70. MOSAPRIDE CITRATE [Concomitant]
     Active Substance: MOSAPRIDE CITRATE
     Dates: start: 20210719
  71. SOMATOSTATIN [Concomitant]
     Active Substance: SOMATOSTATIN
     Dates: start: 20210722, end: 20210808
  72. ESTAZOLAM [Concomitant]
     Active Substance: ESTAZOLAM
     Dates: start: 20210801
  73. DEXAMETHASONE SODIUM PHOSPHATE [Concomitant]
     Active Substance: DEXAMETHASONE SODIUM PHOSPHATE
     Route: 042
     Dates: start: 20210801, end: 20210802
  74. DESLANOSIDE [Concomitant]
     Active Substance: DESLANOSIDE
     Dates: start: 20210804, end: 20210809
  75. MEDROXYPROGESTERONE ACETATE [Concomitant]
     Active Substance: MEDROXYPROGESTERONE ACETATE
     Dates: start: 20210810
  76. CEFDINIR [Concomitant]
     Active Substance: CEFDINIR
     Dates: start: 20210810, end: 20210816
  77. LOXOPROFEN [Concomitant]
     Active Substance: LOXOPROFEN
     Route: 048
     Dates: start: 20210810
  78. ACETAMINOPHEN\OXYCODONE HYDROCHLORIDE [Concomitant]
     Active Substance: ACETAMINOPHEN\OXYCODONE HYDROCHLORIDE
     Route: 048
  79. AGKISTRODON VIPER HEMAGGLUTINASE [Concomitant]
     Indication: Haemostasis
     Route: 042
     Dates: start: 20210710, end: 20210710
  80. AGKISTRODON VIPER HEMAGGLUTINASE [Concomitant]
     Dosage: DOSE: 2 OTHER
     Route: 042
     Dates: start: 20210628, end: 20210630
  81. GEMCITABINE [Concomitant]
     Active Substance: GEMCITABINE
     Dates: start: 20210907, end: 20210914
  82. HUANGQIN [Concomitant]
  83. CAMRELIZUMAB [Concomitant]
     Active Substance: CAMRELIZUMAB
     Dates: start: 20210907, end: 20210914

REACTIONS (2)
  - Acquired tracheo-oesophageal fistula [Not Recovered/Not Resolved]
  - Pneumonia aspiration [Recovered/Resolved]

NARRATIVE: CASE EVENT DATE: 20210613
